FAERS Safety Report 23267996 (Version 15)
Quarter: 2025Q3

REPORT INFORMATION
  Report Type: Spontaneous
  Country: US (occurrence: US)
  Receive Date: 20231206
  Receipt Date: 20250922
  Transmission Date: 20251020
  Serious: No
  Sender: VERTEX
  Company Number: US-VERTEX PHARMACEUTICALS-2023-015054

PATIENT
  Sex: Male
  Weight: 78 kg

DRUGS (12)
  1. SYMDEKO [Suspect]
     Active Substance: IVACAFTOR\TEZACAFTOR
     Indication: Cystic fibrosis
     Dosage: 1 YELLOW TABLET (100MG/150MG) IN MORNING AND 1 BLUE TABLET (150MG) IN EVENING, BID
     Route: 048
     Dates: start: 202205
  2. SYMDEKO [Suspect]
     Active Substance: IVACAFTOR\TEZACAFTOR
     Route: 048
  3. SYMDEKO [Suspect]
     Active Substance: IVACAFTOR\TEZACAFTOR
     Dosage: 1 WHITE TABLET (50MG/75MG) IN MORNING AND 1 BLUE TABLET (75MG) IN THE EVENING, BID
     Route: 048
     Dates: start: 20231019, end: 2023
  4. SYMDEKO [Suspect]
     Active Substance: IVACAFTOR\TEZACAFTOR
     Dosage: 150 MG, QD (AT THE NIGHT)
     Route: 048
  5. SYMDEKO [Suspect]
     Active Substance: IVACAFTOR\TEZACAFTOR
     Dosage: 1 TABLET (100MG/ 150MG) MORNING DOSE AT NIGHT (REDUCED), QD
     Route: 048
     Dates: start: 20240511
  6. MELATONIN [Suspect]
     Active Substance: MELATONIN
     Indication: Insomnia
     Route: 065
  7. FLOMAX [Concomitant]
     Active Substance: TAMSULOSIN HYDROCHLORIDE
  8. LIPITOR [Concomitant]
     Active Substance: ATORVASTATIN CALCIUM
  9. LIPITOR [Concomitant]
     Active Substance: ATORVASTATIN CALCIUM
  10. FAMOTIDINE [Concomitant]
     Active Substance: FAMOTIDINE
  11. SODIUM CHLORIDE [Concomitant]
     Active Substance: SODIUM CHLORIDE
  12. CRESTOR [Concomitant]
     Active Substance: ROSUVASTATIN CALCIUM

REACTIONS (17)
  - Brain fog [Recovered/Resolved]
  - Nervous system disorder [Recovered/Resolved]
  - Hangover [Unknown]
  - Dizziness [Unknown]
  - Infection [Unknown]
  - Productive cough [Recovered/Resolved]
  - Secretion discharge [Unknown]
  - Product dose omission issue [Unknown]
  - Sputum discoloured [Recovered/Resolved]
  - Hypotension [Unknown]
  - Fatigue [Not Recovered/Not Resolved]
  - Insomnia [Not Recovered/Not Resolved]
  - Diarrhoea [Not Recovered/Not Resolved]
  - Headache [Not Recovered/Not Resolved]
  - Sinus congestion [Not Recovered/Not Resolved]
  - Drug intolerance [Unknown]
  - Drug ineffective [Unknown]

NARRATIVE: CASE EVENT DATE: 20230101
